FAERS Safety Report 19090770 (Version 2)
Quarter: 2021Q2

REPORT INFORMATION
  Report Type: Spontaneous
  Country: US (occurrence: US)
  Receive Date: 20210405
  Receipt Date: 20210407
  Transmission Date: 20210717
  Serious: No
  Sender: FDA-Public Use
  Company Number: US-ORGANON-O2103USA002357

PATIENT
  Sex: Female
  Weight: 82.1 kg

DRUGS (1)
  1. NEXPLANON [Suspect]
     Active Substance: ETONOGESTREL
     Dosage: 1 ROD IN LEFT ARM
     Route: 059
     Dates: start: 20190115, end: 20210226

REACTIONS (2)
  - Device breakage [Recovered/Resolved]
  - No adverse event [Unknown]
